FAERS Safety Report 8883694 (Version 1)
Quarter: 2012Q4

REPORT INFORMATION
  Report Type: 
  Country: US (occurrence: US)
  Receive Date: 20121102
  Receipt Date: 20121102
  Transmission Date: 20130627
  Serious: No
  Sender: FDA-Public Use
  Company Number: US-GLAXOSMITHKLINE-A0989533A

PATIENT
  Age: 34 Year
  Sex: Female

DRUGS (4)
  1. HORIZANT [Suspect]
     Indication: MUSCULOSKELETAL DISORDER
     Dosage: 600MG Single dose
     Route: 048
     Dates: start: 20120813
  2. XYZAL [Concomitant]
  3. LUNESTA [Concomitant]
  4. IRON [Concomitant]

REACTIONS (1)
  - Pruritus generalised [Recovered/Resolved]
